FAERS Safety Report 6657831-7 (Version None)
Quarter: 2010Q1

REPORT INFORMATION
  Report Type: 
  Country: None (occurrence: None)
  Receive Date: 20100330
  Receipt Date: 20100318
  Transmission Date: 20100710
  Serious: Yes (Other)
  Sender: FDA-Public Use
  Company Number: US-WYE-H14189210

PATIENT
  Sex: Female
  Weight: 83.99 kg

DRUGS (13)
  1. PRISTIQ [Suspect]
     Indication: DEPRESSION
     Route: 048
     Dates: start: 20090101
  2. CELEBREX [Suspect]
     Indication: OSTEOARTHRITIS
     Route: 048
  3. SYNTHROID [Concomitant]
     Indication: THYROID DISORDER
     Dosage: 125 MCG DAILY
     Route: 048
  4. PRILOSEC [Concomitant]
     Indication: HERNIA
     Dosage: UNKNOWN
  5. PRILOSEC [Concomitant]
     Indication: GASTRIC DISORDER
  6. FOLIC ACID [Concomitant]
     Dosage: UNKNOWN
  7. ACTONEL [Concomitant]
     Indication: OSTEOPOROSIS
     Dosage: UNKNOWN
     Route: 048
     Dates: end: 20100101
  8. GLUCOSE [Concomitant]
     Dosage: UNKNOWN
  9. CALCIUM [Concomitant]
     Dosage: UNKNOWN
  10. VITAMIN B COMPLEX TAB [Concomitant]
     Dosage: UNKNOWN
  11. VITAMIN D [Concomitant]
     Dosage: UNKNOWN
  12. LEXAPRO [Suspect]
     Indication: DEPRESSION
     Dosage: UNKNOWN
     Route: 048
     Dates: end: 20090101
  13. ZOCOR [Concomitant]
     Indication: BLOOD CHOLESTEROL INCREASED
     Route: 048

REACTIONS (5)
  - CATARACT [None]
  - EYE LASER SURGERY [None]
  - MEDICATION ERROR [None]
  - VISUAL ACUITY REDUCED [None]
  - WEIGHT DECREASED [None]
